FAERS Safety Report 9643363 (Version 2)
Quarter: 2013Q4

REPORT INFORMATION
  Report Type: Spontaneous
  Country: US (occurrence: US)
  Receive Date: 20131024
  Receipt Date: 20131229
  Transmission Date: 20140711
  Serious: No
  Sender: FDA-Public Use
  Company Number: US-TEVA-440026USA

PATIENT
  Age: 15 Year
  Sex: Male

DRUGS (3)
  1. CLARAVIS [Suspect]
     Route: 048
     Dates: start: 201307
  2. CLARAVIS [Suspect]
     Dosage: 40 MILLIGRAM DAILY;
     Route: 048
     Dates: start: 20130911, end: 20131021
  3. CLARAVIS [Suspect]
     Dosage: 30 MILLIGRAM DAILY;
     Route: 048
     Dates: start: 20131021

REACTIONS (1)
  - Headache [Recovered/Resolved]
